FAERS Safety Report 5149194-3 (Version None)
Quarter: 2006Q4

REPORT INFORMATION
  Report Type: 
  Country: None (occurrence: None)
  Receive Date: 20061113
  Receipt Date: 20060906
  Transmission Date: 20070319
  Serious: No
  Sender: FDA-Public Use
  Company Number: US-GLAXOSMITHKLINE-A0619259A

PATIENT
  Sex: Male

DRUGS (11)
  1. COREG [Suspect]
     Dosage: 25MG TWICE PER DAY
     Route: 048
     Dates: start: 20050101
  2. FUROSEMIDE [Concomitant]
  3. LANOXIN [Concomitant]
  4. LISINOPRIL [Concomitant]
  5. METFORMIN [Concomitant]
  6. SPIRONOLACTONE [Concomitant]
  7. WARFARIN SODIUM [Concomitant]
  8. VYTORIN [Concomitant]
  9. TYLENOL [Concomitant]
  10. MIRAPEX [Concomitant]
  11. CENTRUM SILVER [Concomitant]

REACTIONS (2)
  - DIZZINESS [None]
  - DRUG ADMINISTRATION ERROR [None]
